FAERS Safety Report 5416068-X (Version None)
Quarter: 2007Q3

REPORT INFORMATION
  Report Type: 
  Country: None (occurrence: None)
  Receive Date: 20070815
  Receipt Date: 20070807
  Transmission Date: 20080115
  Serious: Yes (Other)
  Sender: FDA-Public Use
  Company Number: BR-ABBOTT-07P-013-0376982-00

PATIENT
  Age: 49 Year
  Sex: Male

DRUGS (5)
  1. RITONAVIR/LOPINAVIR [Suspect]
     Indication: SYSTEMIC ANTIVIRAL TREATMENT
     Dosage: NOT REPORTED
  2. TENOFOVIR [Suspect]
     Indication: SYSTEMIC ANTIVIRAL TREATMENT
     Dosage: NOT REPORTED
  3. AMPRENAVIR [Concomitant]
     Indication: SYSTEMIC ANTIVIRAL TREATMENT
     Dosage: NOT REPORTED
  4. LAMIVUDINE [Concomitant]
     Indication: SYSTEMIC ANTIVIRAL TREATMENT
     Dosage: NOT REPORTED
  5. BEZAFIBRATE [Concomitant]
     Indication: DRUG USE FOR UNKNOWN INDICATION
     Dosage: NOT REPORTED

REACTIONS (3)
  - HYPOKALAEMIA [None]
  - QUADRIPARESIS [None]
  - RHABDOMYOLYSIS [None]
